FAERS Safety Report 9198854 (Version 2)
Quarter: 2013Q2

REPORT INFORMATION
  Report Type: Spontaneous
  Country: ES (occurrence: ES)
  Receive Date: 20130329
  Receipt Date: 20130416
  Transmission Date: 20140414
  Serious: Yes (Other)
  Sender: FDA-Public Use
  Company Number: ES-009507513-1303ESP010480

PATIENT
  Age: 46 Year
  Sex: Male
  Weight: 85 kg

DRUGS (1)
  1. PROPECIA [Suspect]
     Indication: ALOPECIA
     Dosage: 1 DAILY TABLET FOLLOWING PATIENT LEAFLET
     Route: 048
     Dates: start: 20040204, end: 200502

REACTIONS (1)
  - Secondary hypogonadism [Not Recovered/Not Resolved]
